FAERS Safety Report 5661360-7 (Version None)
Quarter: 2008Q1

REPORT INFORMATION
  Report Type: 
  Country: None (occurrence: None)
  Receive Date: 20080312
  Receipt Date: 20080307
  Transmission Date: 20080703
  Serious: Yes (Death, Other)
  Sender: FDA-Public Use
  Company Number: GB-ABBOTT-08P-167-0439522-00

PATIENT
  Age: 69 Year
  Sex: Male

DRUGS (4)
  1. RITONAVIR [Suspect]
     Indication: HIV INFECTION
     Dosage: NOT REPORTED
  2. INDINIVIR SULFATE [Suspect]
     Indication: HIV INFECTION
     Dosage: NOT REPORTED
  3. NEVIRAPINE [Suspect]
     Indication: HIV INFECTION
     Dosage: NOT REPORTED
  4. STAVUDINE [Suspect]
     Indication: HIV INFECTION
     Dosage: NOT REPORTED

REACTIONS (5)
  - ACUTE CHEST SYNDROME [None]
  - MALIGNANT MELANOMA [None]
  - METASTASES TO LYMPH NODES [None]
  - METASTASES TO SKIN [None]
  - METASTASIS [None]
